FAERS Safety Report 23790791 (Version 1)
Quarter: 2024Q2

REPORT INFORMATION
  Report Type: Spontaneous
  Country: FR (occurrence: FR)
  Receive Date: 20240427
  Receipt Date: 20240427
  Transmission Date: 20240716
  Serious: Yes (Other)
  Sender: FDA-Public Use
  Company Number: FR-AFSSAPS-PB2024000373

PATIENT
  Age: 30 Year
  Sex: Female
  Weight: 53.7 kg

DRUGS (1)
  1. METRONIDAZOLE [Suspect]
     Active Substance: METRONIDAZOLE
     Indication: Bacterial vaginosis
     Dosage: 2 GRAM (1 TOTAL)
     Route: 048
     Dates: start: 20240314

REACTIONS (4)
  - Chest discomfort [Not Recovered/Not Resolved]
  - Anxiety [Recovering/Resolving]
  - Asthenia [Recovering/Resolving]
  - Cognitive disorder [Recovered/Resolved]

NARRATIVE: CASE EVENT DATE: 20240314
